FAERS Safety Report 21442943 (Version 3)
Quarter: 2022Q4

REPORT INFORMATION
  Report Type: Report from Study
  Country: US (occurrence: US)
  Receive Date: 20221012
  Receipt Date: 20221220
  Transmission Date: 20230112
  Serious: Yes (Hospitalization, Other)
  Sender: FDA-Public Use
  Company Number: US-ABBVIE-4148167

PATIENT
  Sex: Female

DRUGS (6)
  1. HUMIRA [Suspect]
     Active Substance: ADALIMUMAB
     Indication: Rheumatoid arthritis
     Route: 058
     Dates: start: 2018, end: 202208
  2. HUMIRA [Suspect]
     Active Substance: ADALIMUMAB
     Route: 058
  3. HUMIRA [Suspect]
     Active Substance: ADALIMUMAB
     Route: 058
     Dates: start: 2014, end: 2018
  4. HUMIRA [Suspect]
     Active Substance: ADALIMUMAB
     Dosage: DISCONTINUED?LAST ADMIN DATE 2022
     Route: 058
     Dates: start: 202210
  5. PFIZER-BIONTECH COVID-19 VACCINE [Concomitant]
     Active Substance: TOZINAMERAN
     Indication: COVID-19 immunisation
     Dosage: FIRST DOSE?FREQUENCY: ONE IN ONCE
     Dates: start: 20210318, end: 20210318
  6. PFIZER-BIONTECH COVID-19 VACCINE [Concomitant]
     Active Substance: TOZINAMERAN
     Indication: COVID-19 immunisation
     Dosage: SECOND DOSE?FREQUENCY: ONE IN ONCE
     Dates: start: 20210408, end: 20210408

REACTIONS (34)
  - Nephrolithiasis [Recovered/Resolved]
  - Kidney enlargement [Recovered/Resolved]
  - Diplopia [Recovering/Resolving]
  - Nephrolithiasis [Unknown]
  - Synovial cyst [Not Recovered/Not Resolved]
  - Urethral disorder [Unknown]
  - Weight decreased [Recovering/Resolving]
  - Urethral stenosis [Unknown]
  - Septic shock [Recovered/Resolved]
  - Pleural effusion [Recovered/Resolved]
  - Bladder dilatation [Recovered/Resolved]
  - Abdominal distension [Unknown]
  - Feeling of body temperature change [Recovered/Resolved]
  - Illness [Unknown]
  - Culture urine positive [Unknown]
  - Escherichia test positive [Recovered/Resolved]
  - Unevaluable event [Unknown]
  - Constipation [Recovered/Resolved]
  - Synovial cyst [Unknown]
  - Feeling abnormal [Recovered/Resolved]
  - Gait disturbance [Unknown]
  - Back pain [Recovered/Resolved]
  - Loss of consciousness [Recovered/Resolved]
  - Abdominal pain upper [Unknown]
  - Asthenia [Recovered/Resolved]
  - Blood pressure decreased [Recovering/Resolving]
  - Renal pain [Recovered/Resolved]
  - Kidney enlargement [Recovered/Resolved]
  - Feeling abnormal [Recovered/Resolved]
  - Arthritis [Not Recovered/Not Resolved]
  - Abdominal distension [Recovered/Resolved]
  - Musculoskeletal chest pain [Recovered/Resolved]
  - Eye disorder [Recovering/Resolving]
  - Urethral obstruction [Recovered/Resolved]

NARRATIVE: CASE EVENT DATE: 20140101
